FAERS Safety Report 16107925 (Version 1)
Quarter: 2019Q1

REPORT INFORMATION
  Report Type: Spontaneous
  Country: US (occurrence: US)
  Receive Date: 20190322
  Receipt Date: 20190322
  Transmission Date: 20190418
  Serious: No
  Sender: FDA-Public Use
  Company Number: US-TEVA-2019-US-1018367

PATIENT
  Sex: Female

DRUGS (1)
  1. BUPRENORPHINE 10MCG/HR TEVA [Suspect]
     Active Substance: BUPRENORPHINE
     Dosage: FORM STRENGTH: 10 MCG/HR

REACTIONS (2)
  - Pruritus [Unknown]
  - Product adhesion issue [Unknown]
